FAERS Safety Report 20343903 (Version 5)
Quarter: 2023Q1

REPORT INFORMATION
  Report Type: Spontaneous
  Country: BE (occurrence: BE)
  Receive Date: 20220118
  Receipt Date: 20230317
  Transmission Date: 20230418
  Serious: Yes (Death, Life-Threatening, Hospitalization, Other)
  Sender: FDA-Public Use
  Company Number: None

PATIENT
  Age: 83 Year
  Sex: Female

DRUGS (27)
  1. APIXABAN [Suspect]
     Active Substance: APIXABAN
     Indication: Anticoagulant therapy
  2. APIXABAN [Suspect]
     Active Substance: APIXABAN
     Indication: Pulmonary embolism
  3. FONDAPARINUX [Concomitant]
     Active Substance: FONDAPARINUX
     Indication: Anticoagulant therapy
     Dosage: 7.5 MILLIGRAM DAY 4 TO DAY 11
     Route: 058
  4. FONDAPARINUX [Concomitant]
     Active Substance: FONDAPARINUX
     Indication: Pulmonary embolism
     Dosage: 5 MILLIGRAM, QD DAY 1 TO DAY 3
     Route: 058
  5. FONDAPARINUX [Concomitant]
     Active Substance: FONDAPARINUX
     Dosage: 5 MILLIGRAM, QD FROM DAY 1 TO DAY 3
     Route: 058
  6. FONDAPARINUX [Concomitant]
     Active Substance: FONDAPARINUX
     Dosage: 7.5 MILLIGRAM, QD FROM DAY 4 TO DAY 12
     Route: 058
  7. FONDAPARINUX [Concomitant]
     Active Substance: FONDAPARINUX
     Dosage: 5 MILLIGRAM, QD FROM DAY 1 TO DAY 3
     Route: 058
  8. FONDAPARINUX [Concomitant]
     Active Substance: FONDAPARINUX
     Dosage: 7.5 MILLIGRAM, QD FROM DAY 4 TO DAY 12
     Route: 058
  9. FONDAPARINUX [Concomitant]
     Active Substance: FONDAPARINUX
     Dosage: 5 MILLIGRAM, QD DAY 1 TO DAY 3
     Route: 058
  10. FONDAPARINUX [Concomitant]
     Active Substance: FONDAPARINUX
     Dosage: 7.5 MILLIGRAM, QD DAY 4 TO DAY 11
     Route: 058
  11. FONDAPARINUX [Concomitant]
     Active Substance: FONDAPARINUX
     Dosage: 7.5 MILLIGRAM DAY 4 TO DAY 11
     Route: 058
  12. FONDAPARINUX [Concomitant]
     Active Substance: FONDAPARINUX
     Dosage: 5 MILLIGRAM, QD DAY 1 TO DAY 3
     Route: 058
  13. MOXIFLOXACIN [Concomitant]
     Active Substance: MOXIFLOXACIN
     Indication: Moraxella infection
     Dosage: 400 MILLIGRAM, QD
     Route: 048
  14. MOXIFLOXACIN [Concomitant]
     Active Substance: MOXIFLOXACIN
     Dosage: 400 MILLIGRAM, QD
     Route: 048
  15. MOXIFLOXACIN [Concomitant]
     Active Substance: MOXIFLOXACIN
     Dosage: 400 MILLIGRAM, QD
     Route: 048
  16. MOXIFLOXACIN [Concomitant]
     Active Substance: MOXIFLOXACIN
     Dosage: 400 MILLIGRAM, QD
     Route: 048
  17. METHYLPREDNISOLONE [Concomitant]
     Active Substance: METHYLPREDNISOLONE
     Indication: Thrombotic thrombocytopenic purpura
     Dosage: 1 MILLIGRAM/KILOGRAM
  18. METHYLPREDNISOLONE [Concomitant]
     Active Substance: METHYLPREDNISOLONE
     Dosage: 1 MILLIGRAM/KILOGRAM
  19. METHYLPREDNISOLONE [Concomitant]
     Active Substance: METHYLPREDNISOLONE
     Dosage: 1 MILLIGRAM/KILOGRAM
  20. METHYLPREDNISOLONE [Concomitant]
     Active Substance: METHYLPREDNISOLONE
     Dosage: 1 MILLIGRAM/KILOGRAM
  21. METHYLPREDNISOLONE [Concomitant]
     Active Substance: METHYLPREDNISOLONE
     Dosage: 1 MILLIGRAM/KILOGRAM
  22. MOXIFLOXACIN HYDROCHLORIDE [Concomitant]
     Active Substance: MOXIFLOXACIN HYDROCHLORIDE
     Indication: Moraxella infection
     Dosage: 400 MILLIGRAM, QD FOR 5 DAYS
     Route: 048
  23. HUMAN IMMUNOGLOBULIN G [Concomitant]
     Active Substance: HUMAN IMMUNOGLOBULIN G
     Indication: Thrombotic thrombocytopenic purpura
     Dosage: 15 GRAM
     Route: 042
  24. HUMAN IMMUNOGLOBULIN G [Concomitant]
     Active Substance: HUMAN IMMUNOGLOBULIN G
     Dosage: 60 GRAM DAY 2
     Route: 042
  25. HUMAN IMMUNOGLOBULIN G [Concomitant]
     Active Substance: HUMAN IMMUNOGLOBULIN G
     Dosage: 60 GRAM DAY 3
     Route: 042
  26. HUMAN IMMUNOGLOBULIN G [Concomitant]
     Active Substance: HUMAN IMMUNOGLOBULIN G
     Dosage: 1.7 GRAM OVER 48 HOURS
     Route: 042
  27. PROTHROMBIN COMPLEX CONCENTRATE NOS [Concomitant]
     Active Substance: COAGULATION FACTOR IX HUMAN\COAGULATION FACTOR VII HUMAN\COAGULATION FACTOR X HUMAN\PROTHROMBIN
     Indication: Adrenal haematoma
     Dosage: DOSE: 500 IU/ML

REACTIONS (3)
  - Adrenal haemorrhage [Fatal]
  - Hypovolaemic shock [Fatal]
  - Prescribed underdose [Unknown]
